FAERS Safety Report 18310975 (Version 1)
Quarter: 2020Q3

REPORT INFORMATION
  Report Type: Spontaneous
  Country: CN (occurrence: CN)
  Receive Date: 20200925
  Receipt Date: 20200925
  Transmission Date: 20201103
  Serious: Yes (Other)
  Sender: FDA-Public Use
  Company Number: CN-009507513-2009CHN008055

PATIENT
  Age: 82 Year
  Sex: Male

DRUGS (5)
  1. SODIUM CHLORIDE. [Concomitant]
     Active Substance: SODIUM CHLORIDE
     Dosage: 250 MILLILITER, TID; MANUFACTURER: SHIJIAZHUANG NO.4 PHARMACEUTICAL CO., LTD.; MEDICATION REASON: SO
     Route: 041
     Dates: start: 20200911, end: 20200913
  2. AMBROXOL HYDROCHLORIDE [Concomitant]
     Active Substance: AMBROXOL HYDROCHLORIDE
     Indication: PNEUMONIA
     Dosage: 15 MILLIGRAM, TID; MANUFACTURER: EMEISHAN TONGHUI PHARMACEUTICAL CO., LTD.
     Route: 041
     Dates: start: 20200911, end: 20200912
  3. TIENAM [Suspect]
     Active Substance: CILASTATIN SODIUM\IMIPENEM
     Indication: PNEUMONIA
  4. SODIUM CHLORIDE. [Concomitant]
     Active Substance: SODIUM CHLORIDE
     Dosage: 2 MILLILITER, TID; MANUFACTURER: SHIJIAZHUANG NO.4 PHARMACEUTICAL CO., LTD.; MEDICATION REASON: SOLV
     Route: 041
     Dates: start: 20200911, end: 20200912
  5. TIENAM [Suspect]
     Active Substance: CILASTATIN SODIUM\IMIPENEM
     Indication: PNEUMONIA
     Dosage: 1G Q8H, 40 DROPS/MIN
     Route: 041
     Dates: start: 20200911, end: 20200913

REACTIONS (1)
  - Haemolysis [Recovered/Resolved]

NARRATIVE: CASE EVENT DATE: 20200912
